FAERS Safety Report 15098623 (Version 1)
Quarter: 2018Q3

REPORT INFORMATION
  Report Type: Spontaneous
  Country: US (occurrence: US)
  Receive Date: 20180702
  Receipt Date: 20180702
  Transmission Date: 20181010
  Serious: Yes (Hospitalization, Other)
  Sender: FDA-Public Use
  Company Number: US-MYLANLABS-2018M1045501

PATIENT
  Age: 68 Year
  Sex: Female
  Weight: 64 kg

DRUGS (4)
  1. POTASSIUM CHLORIDE. [Suspect]
     Active Substance: POTASSIUM CHLORIDE
     Indication: HYPOKALAEMIA
     Dosage: UNK
     Route: 048
  2. TUMS                               /00193601/ [Concomitant]
     Active Substance: CALCIUM CARBONATE\MAGNESIUM CARBONATE\MAGNESIUM TRISILICATE
     Indication: HYPOKALAEMIA
     Dosage: 4 DF, QD
  3. MAXZIDE?25 [Suspect]
     Active Substance: HYDROCHLOROTHIAZIDE\TRIAMTERENE
     Indication: MENIERE^S DISEASE
     Dosage: 25 MG, QD
     Route: 048
     Dates: start: 1986
  4. LEVORA [Concomitant]
     Active Substance: ETHINYL ESTRADIOL\LEVONORGESTREL
     Indication: HORMONE REPLACEMENT THERAPY
     Dosage: UNK

REACTIONS (15)
  - Depressed mood [Not Recovered/Not Resolved]
  - Blood potassium decreased [Recovering/Resolving]
  - Eye disorder [Not Recovered/Not Resolved]
  - Gait inability [Recovering/Resolving]
  - Weight increased [Not Recovered/Not Resolved]
  - Hypoacusis [Not Recovered/Not Resolved]
  - Bedridden [Recovering/Resolving]
  - Loss of consciousness [Recovered/Resolved]
  - Glaucoma [Not Recovered/Not Resolved]
  - Fall [Recovering/Resolving]
  - Balance disorder [Not Recovered/Not Resolved]
  - Hypokalaemia [Recovering/Resolving]
  - Meniere^s disease [Not Recovered/Not Resolved]
  - Oedema peripheral [Not Recovered/Not Resolved]
  - Hypersensitivity [Unknown]

NARRATIVE: CASE EVENT DATE: 20170307
